FAERS Safety Report 20256165 (Version 1)
Quarter: 2021Q4

REPORT INFORMATION
  Report Type: Spontaneous
  Country: US (occurrence: US)
  Receive Date: 20211230
  Receipt Date: 20211230
  Transmission Date: 20220303
  Serious: Yes (Life-Threatening, Other)
  Sender: FDA-Public Use
  Company Number: US-PROCTER_AND_GAMBLE-GS21118012

PATIENT
  Sex: Female

DRUGS (1)
  1. ALCOHOL ANTIBACTERIAL GEL(NONE-RINSE) [Suspect]
     Active Substance: ALCOHOL
     Route: 048

REACTIONS (5)
  - Unresponsive to stimuli [Recovered/Resolved]
  - Pulse abnormal [Recovered/Resolved]
  - Incorrect route of product administration [Unknown]
  - Exposure via ingestion [Unknown]
  - Intentional product use issue [Unknown]
